FAERS Safety Report 8828700 (Version 1)
Quarter: 2012Q4

REPORT INFORMATION
  Report Type: Report from Study
  Country: NO (occurrence: NO)
  Receive Date: 20121008
  Receipt Date: 20121008
  Transmission Date: 20130627
  Serious: Yes (Hospitalization)
  Sender: FDA-Public Use
  Company Number: NO-BAXTER-2012BAX018697

PATIENT
  Age: 49 Year
  Sex: Female
  Weight: 91 kg

DRUGS (14)
  1. SENDOXAN 1000 MG PULVER TIL INJEKSJONSV?SKE, OPPL?SNING [Suspect]
     Indication: BREAST CANCER
     Dosage: 100
     Route: 042
     Dates: start: 20120202, end: 20120430
  2. SENDOXAN 1000 MG PULVER TIL INJEKSJONSV?SKE, OPPL?SNING [Suspect]
     Dosage: 100
     Route: 042
     Dates: start: 20120507, end: 20120626
  3. BEVACIZUMAB [Suspect]
     Indication: BREAST CANCER
     Route: 042
     Dates: start: 20120202, end: 20120430
  4. BEVACIZUMAB [Suspect]
     Route: 042
     Dates: start: 20120507
  5. BEVACIZUMAB [Suspect]
     Route: 042
     Dates: start: 20120618
  6. FLUOROURACIL [Suspect]
     Indication: BREAST CANCER
     Dosage: 100
     Route: 042
     Dates: start: 20120202, end: 20120430
  7. FLUOROURACIL [Suspect]
     Dosage: 100
     Route: 042
     Dates: start: 20120507, end: 20120626
  8. EPIRUBICIN HYDROCHLORIDE [Suspect]
     Indication: BREAST CANCER
     Dosage: 100
     Route: 042
     Dates: start: 20120202, end: 20120430
  9. EPIRUBICIN HYDROCHLORIDE [Suspect]
     Dosage: 100
     Route: 042
     Dates: start: 20120507, end: 20120626
  10. DOCETAXEL [Suspect]
     Indication: BREAST CANCER
     Route: 042
     Dates: start: 20120507, end: 20120618
  11. ATORVASTATIN CALCIUM [Concomitant]
     Indication: DRUG USE FOR UNKNOWN INDICATION
     Route: 065
  12. BUDESONIDE/FORMOTEROL FUMARATE [Concomitant]
     Indication: DRUG USE FOR UNKNOWN INDICATION
     Route: 065
  13. FLUTICASONE FUROATE [Concomitant]
     Indication: DRUG USE FOR UNKNOWN INDICATION
     Route: 065
  14. EBASTINE [Concomitant]
     Indication: DRUG USE FOR UNKNOWN INDICATION
     Route: 065

REACTIONS (4)
  - Upper respiratory tract infection [Recovered/Resolved]
  - Febrile neutropenia [Recovered/Resolved]
  - Non-cardiac chest pain [Recovered/Resolved]
  - Febrile neutropenia [Recovered/Resolved]
